FAERS Safety Report 7657204-4 (Version None)
Quarter: 2011Q3

REPORT INFORMATION
  Report Type: 
  Country: None (occurrence: None)
  Receive Date: 20110804
  Receipt Date: 20110803
  Transmission Date: 20111222
  Serious: Yes (Life-Threatening)
  Sender: FDA-Public Use
  Company Number: IT-ABBOTT-11P-083-0843398-00

PATIENT
  Sex: Male

DRUGS (1)
  1. HUMIRA [Suspect]
     Indication: CROHN'S DISEASE
     Dosage: CYCLIC
     Route: 058
     Dates: start: 20100301, end: 20110301

REACTIONS (1)
  - PANCYTOPENIA [None]
